FAERS Safety Report 6028300-2 (Version None)
Quarter: 2009Q1

REPORT INFORMATION
  Report Type: 
  Country: None (occurrence: None)
  Receive Date: 20090106
  Receipt Date: 20081230
  Transmission Date: 20090719
  Serious: Yes (Other)
  Sender: FDA-Public Use
  Company Number: SE-BAYER-200832576GPV

PATIENT
  Age: 28 Year
  Sex: Male

DRUGS (15)
  1. FLUDARA [Suspect]
     Indication: BONE MARROW CONDITIONING REGIMEN
     Route: 042
     Dates: start: 20060123, end: 20060128
  2. MYLERAN [Suspect]
     Indication: BONE MARROW CONDITIONING REGIMEN
     Route: 048
     Dates: start: 20060129, end: 20060131
  3. ATG-FRESENIUS [Suspect]
     Indication: BONE MARROW CONDITIONING REGIMEN
     Route: 042
     Dates: start: 20060129, end: 20060201
  4. BUSULFAN [Suspect]
     Indication: BONE MARROW CONDITIONING REGIMEN
     Dates: start: 20060131
  5. URSO FALK [Concomitant]
     Indication: DRUG USE FOR UNKNOWN INDICATION
  6. DIFLUCAN [Concomitant]
     Indication: DRUG USE FOR UNKNOWN INDICATION
  7. SANDIMMUNE [Concomitant]
     Indication: DRUG USE FOR UNKNOWN INDICATION
  8. FRAGMIN [Concomitant]
     Indication: DRUG USE FOR UNKNOWN INDICATION
  9. EUSAPRIM [Concomitant]
     Indication: DRUG USE FOR UNKNOWN INDICATION
  10. EMGESAN [Concomitant]
     Indication: DRUG USE FOR UNKNOWN INDICATION
  11. NEUPOGEN [Concomitant]
     Indication: DRUG USE FOR UNKNOWN INDICATION
  12. LORABID [Concomitant]
     Indication: DRUG USE FOR UNKNOWN INDICATION
  13. GRANOCYTE [Concomitant]
     Indication: DRUG USE FOR UNKNOWN INDICATION
  14. GEAVIR [Concomitant]
     Indication: DRUG USE FOR UNKNOWN INDICATION
  15. PANTOPRAZOLE SODIUM [Concomitant]
     Indication: DRUG USE FOR UNKNOWN INDICATION

REACTIONS (1)
  - DEAFNESS [None]
